FAERS Safety Report 24889755 (Version 1)
Quarter: 2025Q1

REPORT INFORMATION
  Report Type: Report from Study
  Country: CA (occurrence: CA)
  Receive Date: 20250127
  Receipt Date: 20250127
  Transmission Date: 20250409
  Serious: Yes (Life-Threatening, Hospitalization, Disabling, Other)
  Sender: NOVARTIS
  Company Number: CA-002147023-NVSC2024CA236299

PATIENT
  Age: 58 Year
  Sex: Male

DRUGS (2)
  1. KESIMPTA [Suspect]
     Active Substance: OFATUMUMAB
     Indication: Relapsing-remitting multiple sclerosis
     Route: 065
     Dates: start: 20240718, end: 20241115
  2. KESIMPTA [Suspect]
     Active Substance: OFATUMUMAB
     Dosage: 20 MG, QMO
     Route: 058

REACTIONS (6)
  - Severe invasive streptococcal infection [Recovering/Resolving]
  - Necrotising fasciitis [Recovering/Resolving]
  - Malaise [Unknown]
  - Mental disorder [Unknown]
  - Insomnia [Unknown]
  - Pain [Unknown]

NARRATIVE: CASE EVENT DATE: 20241201
